FAERS Safety Report 13497799 (Version 1)
Quarter: 2017Q2

REPORT INFORMATION
  Report Type: Spontaneous
  Country: SE (occurrence: SE)
  Receive Date: 20170428
  Receipt Date: 20170428
  Transmission Date: 20170830
  Serious: Yes (Other)
  Sender: FDA-Public Use
  Company Number: SE-PFIZER INC-2017184376

PATIENT
  Age: 16 Year
  Sex: Female

DRUGS (4)
  1. METHOTREXATE SODIUM. [Suspect]
     Active Substance: METHOTREXATE SODIUM
     Indication: PSORIATIC ARTHROPATHY
     Dosage: 15 MG, WEEKLY
     Route: 048
     Dates: start: 201409, end: 20141124
  2. KEPPRA [Interacting]
     Active Substance: LEVETIRACETAM
     Indication: EPILEPSY
     Dosage: 500 MG, 2X/DAY
     Route: 048
     Dates: start: 2012, end: 201412
  3. ZOFRAN [Concomitant]
     Active Substance: ONDANSETRON HYDROCHLORIDE
     Dosage: UNK
  4. METHOTREXATE SODIUM. [Interacting]
     Active Substance: METHOTREXATE SODIUM
     Indication: PSORIATIC ARTHROPATHY
     Dosage: 12.5 MG, WEEKLY
     Route: 058
     Dates: start: 20141124, end: 20141204

REACTIONS (4)
  - Vomiting [Not Recovered/Not Resolved]
  - Weight decreased [Unknown]
  - Nausea [Unknown]
  - Drug interaction [Unknown]

NARRATIVE: CASE EVENT DATE: 201411
